FAERS Safety Report 4430018-4 (Version None)
Quarter: 2004Q3

REPORT INFORMATION
  Report Type: 
  Country: None (occurrence: None)
  Receive Date: 20040817
  Receipt Date: 20040804
  Transmission Date: 20050211
  Serious: Yes (Hospitalization, Other)
  Sender: FDA-Public Use
  Company Number: HQWYE839904AUG04

PATIENT
  Age: 95 Year
  Sex: Female

DRUGS (9)
  1. CORDARONE [Suspect]
     Indication: VENTRICULAR TACHYCARDIA
     Dosage: 300 MG 2X PER 1 DAY; ORAL
     Route: 048
     Dates: start: 20031201, end: 20040607
  2. CARVEDILOL [Suspect]
     Dosage: 12.5 MG 2X PER 1 DAY; ORAL
     Route: 048
  3. NITRODERM TTS (GYCERYL TRINITRATE) [Concomitant]
  4. CORVATON ^HOECHST^ (MOLSIDOMINE) [Concomitant]
  5. ENALAPRIL MALEATE [Concomitant]
  6. TARDYFERON 9FERROUS SULFATE) [Concomitant]
  7. SUCRALFATE [Concomitant]
  8. NOVONORM (REPAGLINIDE) [Concomitant]
  9. LASIX [Concomitant]

REACTIONS (11)
  - ACUTE CORONARY SYNDROME [None]
  - ASTHENIA [None]
  - CARDIAC FAILURE [None]
  - CARDIAC MURMUR [None]
  - ELECTROCARDIOGRAM QT PROLONGED [None]
  - FALL [None]
  - GAIT DISTURBANCE [None]
  - MALAISE [None]
  - SINUS BRADYCARDIA [None]
  - SYNCOPE [None]
  - TROPONIN INCREASED [None]
